FAERS Safety Report 7657820-X (Version None)
Quarter: 2011Q3

REPORT INFORMATION
  Report Type: 
  Country: None (occurrence: None)
  Receive Date: 20110805
  Receipt Date: 20110725
  Transmission Date: 20111222
  Serious: No
  Sender: FDA-Public Use
  Company Number: US-BIOGENIDEC-2010BI031327

PATIENT
  Age: 45 Year
  Sex: Female

DRUGS (3)
  1. ALPRAZOLAM [Concomitant]
     Indication: PREMEDICATION
  2. TYSABRI [Suspect]
     Indication: MULTIPLE SCLEROSIS
     Route: 042
     Dates: start: 20100604, end: 20100702
  3. TYSABRI [Suspect]
     Route: 042
     Dates: start: 20101129

REACTIONS (12)
  - COORDINATION ABNORMAL [None]
  - HEART RATE INCREASED [None]
  - DYSPNOEA [None]
  - PAIN IN EXTREMITY [None]
  - SENSATION OF HEAVINESS [None]
  - MUSCULAR WEAKNESS [None]
  - THROAT IRRITATION [None]
  - MOBILITY DECREASED [None]
  - PAIN [None]
  - PANIC ATTACK [None]
  - BURNING SENSATION [None]
  - FATIGUE [None]
